FAERS Safety Report 12256535 (Version 1)
Quarter: 2016Q2

REPORT INFORMATION
  Report Type: Spontaneous
  Country: US (occurrence: US)
  Receive Date: 20160412
  Receipt Date: 20160412
  Transmission Date: 20160815
  Serious: Yes (Hospitalization)
  Sender: FDA-Public Use
  Company Number: US-PFIZER INC-2016202052

PATIENT
  Age: 55 Year
  Sex: Male
  Weight: 73 kg

DRUGS (10)
  1. LEVAQUIN [Concomitant]
     Active Substance: LEVOFLOXACIN
     Indication: PYREXIA
     Dosage: 500 MG, DAILY, 250 MG 2 PILLS A DAY
  2. ATROVENT [Concomitant]
     Active Substance: IPRATROPIUM BROMIDE
     Indication: HYPERSENSITIVITY
     Dosage: UNK, 2 SPRAYS
     Route: 045
  3. BACTRIM [Concomitant]
     Active Substance: SULFAMETHOXAZOLE\TRIMETHOPRIM
     Dosage: 160 MG, UNK
  4. VFEND [Suspect]
     Active Substance: VORICONAZOLE
     Dosage: UNK
     Route: 048
  5. VITAMIN D /00107901/ [Concomitant]
     Active Substance: ERGOCALCIFEROL
     Indication: VITAMIN D DEFICIENCY
     Dosage: UNK, ^315-200^ MG
  6. MULTIVITAMIN /07504101/ [Concomitant]
     Active Substance: VITAMINS
     Dosage: UNK
  7. SINGULAIR [Concomitant]
     Active Substance: MONTELUKAST SODIUM
     Indication: HYPERSENSITIVITY
     Dosage: 10 MG, UNK
  8. PEPCID [Concomitant]
     Active Substance: FAMOTIDINE
     Indication: DYSPEPSIA
     Dosage: 20 MG, UNK
  9. SPIRIVA [Concomitant]
     Active Substance: TIOTROPIUM BROMIDE MONOHYDRATE
     Dosage: UNK, 2 PUFFS
  10. CELEXA [Concomitant]
     Active Substance: CITALOPRAM HYDROBROMIDE
     Indication: DEPRESSION
     Dosage: 20 MG, 1X/DAY

REACTIONS (1)
  - Graft versus host disease in lung [Unknown]
